FAERS Safety Report 23391067 (Version 3)
Quarter: 2024Q1

REPORT INFORMATION
  Report Type: Spontaneous
  Country: US (occurrence: US)
  Receive Date: 20240111
  Receipt Date: 20240215
  Transmission Date: 20240409
  Serious: Yes (Hospitalization, Other)
  Sender: FDA-Public Use
  Company Number: US-Accord-400388

PATIENT
  Age: 73 Year
  Sex: Male
  Weight: 81.7 kg

DRUGS (21)
  1. CISPLATIN [Suspect]
     Active Substance: CISPLATIN
     Indication: Small cell lung cancer
     Dosage: Q3W
     Route: 042
     Dates: start: 20230918, end: 20230918
  2. ETOPOSIDE [Suspect]
     Active Substance: ETOPOSIDE
     Indication: Small cell lung cancer
     Dosage: Q3W
     Route: 042
     Dates: start: 20230918, end: 20230920
  3. VITAMIN B12 [Concomitant]
     Active Substance: CYANOCOBALAMIN
     Dosage: 1000 MCG, BY MOUTH, EVERY DAY
     Dates: end: 20231215
  4. FISH OIL [Concomitant]
     Active Substance: FISH OIL
     Dosage: 1000 MG, BY MOUTH, EVERY DAY
     Dates: end: 20231214
  5. ALBUTEROL [Concomitant]
     Active Substance: ALBUTEROL
     Indication: Dyspnoea
     Dosage: AS NEEDED, INHALATION, LAST DOSE WAS OVER 1 WEEK A FOR UP TO 30 DAYS
  6. ECOTRIN [Concomitant]
     Active Substance: ASPIRIN
     Dosage: DELAYED RELEASE, 81 MG, BY MOUTH, EVERY DAY
     Dates: end: 20231215
  7. LIORESAL [Concomitant]
     Active Substance: BACLOFEN
     Indication: Muscle spasms
     Dosage: 10 MG, BY MOUTH, AT BEDTIME, AS NEEDED
     Dates: end: 20231214
  8. ADVAIR HFA [Concomitant]
     Active Substance: FLUTICASONE PROPIONATE\SALMETEROL XINAFOATE
     Indication: Asthma
     Dosage: 250-50 MCG/ACT, INHALE, 1 PUFF, 2 TIME A DAY
     Dates: end: 20231215
  9. NEURONTIN [Concomitant]
     Active Substance: GABAPENTIN
     Dosage: 300 MG BY MOUTH, 2 TIMES A DAY (600 MG)
     Dates: start: 20231215
  10. MUCINEX [Concomitant]
     Active Substance: GUAIFENESIN
     Dosage: TABLET SUSTAINED RELEASE, 600 MG, BY MOUTH, EVERY 12 HOURS
     Dates: end: 20231215
  11. GLUCOPHAGE [Concomitant]
     Active Substance: METFORMIN HYDROCHLORIDE
     Dosage: 500 MG X 1.5 (750 MG), 2 TIMES A DAY WITH MEALS, BY MOUTH LAST DOSE AS 12-DEC-2023
  12. PRILOSEC [Concomitant]
     Active Substance: OMEPRAZOLE MAGNESIUM
     Dosage: CAPSULE, DELAYED RELEASE, 40 MG, BY MOUTH, EVERY DAY
     Dates: end: 20231215
  13. ZOFRAN [Concomitant]
     Active Substance: ONDANSETRON HYDROCHLORIDE
     Indication: Nausea
     Dosage: 4 MG, BY MOUTH, EVERY FOURS, AS NEEDED
     Dates: start: 20230919, end: 20231214
  14. COMPAZINE [Concomitant]
     Active Substance: PROCHLORPERAZINE MALEATE
     Indication: Nausea
     Dosage: BY MOUTH, EVERY 6 HOURS, AS NEEDED
     Dates: start: 20230919
  15. CHOLECALCIFEROL [Concomitant]
     Active Substance: CHOLECALCIFEROL
     Dosage: 1000 UNIT/25 MCG, BY MOUTH, EVERY DAY
     Dates: end: 20231215
  16. CISPLATIN [Suspect]
     Active Substance: CISPLATIN
     Indication: Small cell lung cancer
     Dosage: Q3W
     Route: 042
     Dates: start: 20231009, end: 20231009
  17. CISPLATIN [Suspect]
     Active Substance: CISPLATIN
     Indication: Small cell lung cancer
     Dosage: Q3W
     Route: 042
     Dates: start: 20231106, end: 20231106
  18. CISPLATIN [Suspect]
     Active Substance: CISPLATIN
     Indication: Small cell lung cancer
     Dosage: Q3W
     Route: 042
     Dates: start: 20231204, end: 20231204
  19. ETOPOSIDE [Suspect]
     Active Substance: ETOPOSIDE
     Indication: Small cell lung cancer
     Dosage: Q3W
     Route: 042
     Dates: start: 20231009, end: 20231011
  20. ETOPOSIDE [Suspect]
     Active Substance: ETOPOSIDE
     Indication: Small cell lung cancer
     Dosage: Q3W
     Route: 042
     Dates: start: 20231106, end: 20231108
  21. ETOPOSIDE [Suspect]
     Active Substance: ETOPOSIDE
     Indication: Small cell lung cancer
     Dosage: Q3W
     Route: 042
     Dates: start: 20231204, end: 20231205

REACTIONS (2)
  - Febrile neutropenia [Recovered/Resolved]
  - Oesophagitis [Recovered/Resolved]

NARRATIVE: CASE EVENT DATE: 20231215
